FAERS Safety Report 8386546-2 (Version None)
Quarter: 2012Q2

REPORT INFORMATION
  Report Type: 
  Country: None (occurrence: None)
  Receive Date: 20120525
  Receipt Date: 20110621
  Transmission Date: 20120825
  Serious: No
  Sender: FDA-Public Use
  Company Number: US-GLAXOSMITHKLINE-A0932235A

PATIENT
  Age: 42 Year
  Sex: Male

DRUGS (4)
  1. HUMALOG [Concomitant]
  2. INSULIN [Concomitant]
  3. VERAMYST [Suspect]
     Indication: SINUSITIS
     Dosage: 2SPR PER DAY
     Route: 045
  4. LANTUS [Concomitant]

REACTIONS (3)
  - ILL-DEFINED DISORDER [None]
  - SINUS HEADACHE [None]
  - HEADACHE [None]
